FAERS Safety Report 9845058 (Version 2)
Quarter: 2014Q1

REPORT INFORMATION
  Report Type: Spontaneous
  Country: JP (occurrence: None)
  Receive Date: 20140122
  Receipt Date: 20140211
  Transmission Date: 20141002
  Serious: Yes (Hospitalization, Other)
  Sender: FDA-Public Use
  Company Number: ABR_01393_2014

PATIENT
  Age: 33 Year
  Sex: Male

DRUGS (3)
  1. GLIADEL [Suspect]
     Indication: MALIGNANT GLIOMA
     Dosage: 53.9 MG 1X, INTRACEREBRAL
     Dates: start: 20131220, end: 20131220
  2. E KEPPRA [Suspect]
     Indication: CONVULSION PROPHYLAXIS
     Dosage: DF
  3. ALEVIATIN /00017401/ (UNKNOWN) [Concomitant]

REACTIONS (5)
  - Convulsion [None]
  - Pyrexia [None]
  - Paralysis [None]
  - Brain oedema [None]
  - Hemiplegia [None]
